FAERS Safety Report 6490433-4 (Version None)
Quarter: 2009Q4

REPORT INFORMATION
  Report Type: 
  Country: None (occurrence: None)
  Receive Date: 20091211
  Receipt Date: 20091201
  Transmission Date: 20100525
  Serious: Yes (Other)
  Sender: FDA-Public Use
  Company Number: FR-BAYER-200939848GPV

PATIENT
  Age: 49 Year
  Sex: Male

DRUGS (3)
  1. LEUKINE [Suspect]
     Indication: IDIOPATHIC PULMONARY FIBROSIS
     Dosage: UNIT DOSE: 500 ?G/ML
     Route: 058
     Dates: start: 20090123, end: 20091105
  2. DI-ANTALVIC [Concomitant]
     Indication: PAIN
  3. PROZAC [Concomitant]
     Dates: end: 20090101

REACTIONS (2)
  - AUTONOMIC NERVOUS SYSTEM IMBALANCE [None]
  - IMMUNODEFICIENCY [None]
